FAERS Safety Report 6251468-X (Version None)
Quarter: 2009Q2

REPORT INFORMATION
  Report Type: 
  Country: None (occurrence: None)
  Receive Date: 20090630
  Receipt Date: 20090618
  Transmission Date: 20091009
  Serious: Yes (Hospitalization, Other)
  Sender: FDA-Public Use
  Company Number: PHHY2009FR25188

PATIENT
  Sex: Male
  Weight: 54 kg

DRUGS (4)
  1. ERL 080A ERL+TAB [Suspect]
     Indication: RENAL FAILURE ACUTE
     Dosage: 720 MG/DAY
     Route: 048
     Dates: start: 20080211
  2. NEORAL [Suspect]
     Indication: RENAL FAILURE ACUTE
     Dosage: 275 MG/DAY
     Route: 048
     Dates: start: 20080211
  3. MOPRAL [Concomitant]
     Dosage: 20 MG, QD
  4. SODIUM BICARBONATE [Concomitant]
     Dosage: 1 G, QD

REACTIONS (2)
  - CYTOMEGALOVIRUS INFECTION [None]
  - RENAL FAILURE [None]
